FAERS Safety Report 25752736 (Version 1)
Quarter: 2025Q3

REPORT INFORMATION
  Report Type: Spontaneous
  Country: EU (occurrence: EU)
  Receive Date: 20250902
  Receipt Date: 20250902
  Transmission Date: 20251020
  Serious: Yes (Disabling)
  Sender: PFIZER
  Company Number: None

PATIENT
  Age: 52 Year
  Sex: Female

DRUGS (6)
  1. RUXIENCE [Suspect]
     Active Substance: RITUXIMAB-PVVR
     Indication: Primary progressive multiple sclerosis
     Route: 042
     Dates: start: 20240816
  2. RUXIENCE [Suspect]
     Active Substance: RITUXIMAB-PVVR
     Route: 042
     Dates: start: 20250818
  3. SOLU-MEDROL [Concomitant]
     Active Substance: METHYLPREDNISOLONE SODIUM SUCCINATE
  4. SODIUM CHLORIDE [Concomitant]
     Active Substance: SODIUM CHLORIDE
  5. ACETAMINOPHEN [Concomitant]
     Active Substance: ACETAMINOPHEN
  6. CETIRIZINE HYDROCHLORIDE [Concomitant]
     Active Substance: CETIRIZINE HYDROCHLORIDE

REACTIONS (10)
  - Fatigue [Not Recovered/Not Resolved]
  - Muscular weakness [Not Recovered/Not Resolved]
  - Clumsiness [Not Recovered/Not Resolved]
  - Alopecia [Not Recovered/Not Resolved]
  - Tremor [Not Recovered/Not Resolved]
  - Palpitations [Not Recovered/Not Resolved]
  - Dyspnoea [Not Recovered/Not Resolved]
  - Movement disorder [Not Recovered/Not Resolved]
  - Dizziness [Not Recovered/Not Resolved]
  - Off label use [Unknown]

NARRATIVE: CASE EVENT DATE: 20240816
